FAERS Safety Report 6287956-X (Version None)
Quarter: 2009Q3

REPORT INFORMATION
  Report Type: 
  Country: None (occurrence: None)
  Receive Date: 20090729
  Receipt Date: 20090722
  Transmission Date: 20100115
  Serious: Yes (Other)
  Sender: FDA-Public Use
  Company Number: US-BAYER-200927528NA

PATIENT
  Sex: Female

DRUGS (2)
  1. AVELOX [Suspect]
     Indication: PNEUMONIA
     Dates: start: 20090301
  2. STEROIDS NOS [Concomitant]
     Indication: PNEUMONIA

REACTIONS (2)
  - MUSCULOSKELETAL DISCOMFORT [None]
  - TENDON RUPTURE [None]
